FAERS Safety Report 9717472 (Version 1)
Quarter: 2013Q4

REPORT INFORMATION
  Report Type: Spontaneous
  Country: US (occurrence: US)
  Receive Date: 20131127
  Receipt Date: 20131127
  Transmission Date: 20140711
  Serious: No
  Sender: FDA-Public Use
  Company Number: US-GILEAD-2009-0019704

PATIENT
  Sex: Female
  Weight: 98.43 kg

DRUGS (15)
  1. LETAIRIS [Suspect]
     Indication: PULMONARY ARTERIAL HYPERTENSION
     Route: 048
     Dates: start: 20081219
  2. LASIX [Concomitant]
  3. HCTZ [Concomitant]
  4. RAMIPRIL [Concomitant]
  5. DILTIAZEM ER [Concomitant]
  6. CLONIDINE [Concomitant]
  7. TOPROL XL [Concomitant]
  8. TRICOR [Concomitant]
  9. LESCOL [Concomitant]
  10. LEVOXYL [Concomitant]
  11. METAGLIP [Concomitant]
  12. LEVEMIR INSULIN [Concomitant]
  13. ASPIRIN EC [Concomitant]
  14. CALCIUM [Concomitant]
  15. XALATAN [Concomitant]

REACTIONS (1)
  - Swelling [Unknown]
